FAERS Safety Report 13188236 (Version 2)
Quarter: 2017Q4

REPORT INFORMATION
  Report Type: Spontaneous
  Country: AR (occurrence: AR)
  Receive Date: 20170206
  Receipt Date: 20171130
  Transmission Date: 20180320
  Serious: Yes (Other)
  Sender: FDA-Public Use
  Company Number: AR-BAYER-2017-019182

PATIENT
  Age: 42 Year
  Sex: Female

DRUGS (1)
  1. QLAIRA [Suspect]
     Active Substance: DIENOGEST\ESTRADIOL VALERATE
     Indication: MENORRHAGIA
     Dosage: UNK
     Route: 048

REACTIONS (7)
  - Autoimmune thyroiditis [Unknown]
  - Cataract [Unknown]
  - Mixed connective tissue disease [Unknown]
  - Open angle glaucoma [Not Recovered/Not Resolved]
  - Fibromyalgia [Unknown]
  - Vitiligo [Unknown]
  - Sjogren^s syndrome [Unknown]

NARRATIVE: CASE EVENT DATE: 20170124
